FAERS Safety Report 9418731 (Version 1)
Quarter: 2013Q3

REPORT INFORMATION
  Report Type: Report from Study
  Country: CA (occurrence: CA)
  Receive Date: 20130725
  Receipt Date: 20130725
  Transmission Date: 20140515
  Serious: Yes (Other)
  Sender: FDA-Public Use
  Company Number: CA-JNJFOC-20130715249

PATIENT
  Age: 17 Year
  Sex: Male
  Weight: 47 kg

DRUGS (3)
  1. REMICADE [Suspect]
     Indication: CROHN^S DISEASE
     Route: 042
  2. RITALIN [Concomitant]
     Route: 065
  3. CALCIUM [Concomitant]
     Route: 065

REACTIONS (1)
  - Renal colic [Not Recovered/Not Resolved]
